FAERS Safety Report 20030526 (Version 2)
Quarter: 2021Q4

REPORT INFORMATION
  Report Type: Spontaneous
  Country: US (occurrence: US)
  Receive Date: 20211103
  Receipt Date: 20211202
  Transmission Date: 20220303
  Serious: No
  Sender: FDA-Public Use
  Company Number: US-PFIZER INC-202101326765

PATIENT

DRUGS (2)
  1. GENOTROPIN [Suspect]
     Active Substance: SOMATROPIN
     Dosage: 0.8 MG, INJECT 0.8MG UNDER THE SKIN EVERY OTHER DAY ALTERNATING WITH 1MG EVERY OTHER DAY
     Route: 058
  2. GENOTROPIN [Suspect]
     Active Substance: SOMATROPIN
     Dosage: 1 MG, INJECT 0.8MG UNDER THE SKIN EVERY OTHER DAY ALTERNATING WITH 1MG EVERY OTHER DAY
     Route: 058

REACTIONS (3)
  - Device leakage [Unknown]
  - Device issue [Unknown]
  - Device malfunction [Unknown]

NARRATIVE: CASE EVENT DATE: 20210712
